FAERS Safety Report 5507888-1 (Version None)
Quarter: 2007Q4

REPORT INFORMATION
  Report Type: 
  Country: None (occurrence: None)
  Receive Date: 20071106
  Receipt Date: 20071025
  Transmission Date: 20080405
  Serious: Yes (Hospitalization)
  Sender: FDA-Public Use
  Company Number: US-ASTRAZENECA-2007UW02046

PATIENT
  Sex: Female

DRUGS (1)
  1. SEROQUEL [Suspect]
     Route: 048
     Dates: start: 19970101, end: 20000901

REACTIONS (7)
  - BREAST CANCER [None]
  - CARDIAC MURMUR [None]
  - CONVULSION [None]
  - HYPERCHOLESTEROLAEMIA [None]
  - NAUSEA [None]
  - TYPE 2 DIABETES MELLITUS [None]
  - VOMITING [None]
